FAERS Safety Report 15144397 (Version 2)
Quarter: 2019Q3

REPORT INFORMATION
  Report Type: Spontaneous
  Country: US (occurrence: US)
  Receive Date: 20180713
  Receipt Date: 20190726
  Transmission Date: 20191004
  Serious: No
  Sender: FDA-Public Use
  Company Number: US-PERRIGO-18US004614

PATIENT
  Age: 51 Year
  Sex: Male
  Weight: 102.04 kg

DRUGS (3)
  1. MINOXIDIL. [Suspect]
     Active Substance: MINOXIDIL
     Indication: ALOPECIA
     Dosage: 1 ML, BID
     Route: 061
     Dates: start: 201712, end: 201804
  2. FISH OIL [Concomitant]
     Active Substance: FISH OIL
     Indication: HYPERTRIGLYCERIDAEMIA
     Dosage: 1200 MG, QD
     Route: 048
  3. FLEXERIL [Concomitant]
     Active Substance: CYCLOBENZAPRINE HYDROCHLORIDE
     Indication: PRODUCT USED FOR UNKNOWN INDICATION
     Dosage: 5 MG, QHS
     Route: 048

REACTIONS (3)
  - Condition aggravated [Not Recovered/Not Resolved]
  - Drug ineffective [Unknown]
  - Application site exfoliation [Unknown]

NARRATIVE: CASE EVENT DATE: 201712
